FAERS Safety Report 9871275 (Version 2)
Quarter: 2014Q1

REPORT INFORMATION
  Report Type: Report from Study
  Country: CA (occurrence: CA)
  Receive Date: 20140205
  Receipt Date: 20140205
  Transmission Date: 20141002
  Serious: Yes (Hospitalization, Other)
  Sender: FDA-Public Use
  Company Number: CA-ABBVIE-13P-028-1183340-00

PATIENT
  Age: 29 Year
  Sex: Male

DRUGS (4)
  1. HUMIRA [Suspect]
     Indication: CROHN^S DISEASE
     Route: 058
     Dates: start: 20110617, end: 20131209
  2. HUMIRA [Suspect]
     Dates: start: 20140115
  3. CORTISONE [Concomitant]
     Indication: CROHN^S DISEASE
     Route: 048
  4. CORTISONE [Concomitant]
     Indication: INTESTINAL FISTULA

REACTIONS (4)
  - Abdominal adhesions [Recovering/Resolving]
  - Abdominal pain [Recovered/Resolved]
  - Ileal fistula [Recovering/Resolving]
  - Gastrointestinal infection [Recovering/Resolving]
